FAERS Safety Report 12321126 (Version 1)
Quarter: 2016Q2

REPORT INFORMATION
  Report Type: Spontaneous
  Country: US (occurrence: None)
  Receive Date: 20160429
  Receipt Date: 20160429
  Transmission Date: 20160815
  Serious: Yes (Other)
  Sender: FDA-Public Use
  Company Number: None

PATIENT
  Age: 62 Year
  Sex: Female
  Weight: 61.69 kg

DRUGS (19)
  1. WELLBUTRIN [Concomitant]
     Active Substance: BUPROPION HYDROCHLORIDE
  2. ZANTAC [Concomitant]
     Active Substance: RANITIDINE HYDROCHLORIDE
  3. VITAMIN B COMPLEX [Concomitant]
     Active Substance: CYANOCOBALAMIN\DEXPANTHENOL\NIACINAMIDE\PYRIDOXINE HYDROCHLORIDE\RIBOFLAVIN 5^-PHOSPHATE SODIUM\THIAMINE HYDROCHLORIDE\VITAMIN B COMPLEX
  4. OMEGA-3 ACIDS [Concomitant]
     Active Substance: OMEGA-3 FATTY ACIDS
  5. ZYRTEC [Concomitant]
     Active Substance: CETIRIZINE HYDROCHLORIDE
  6. GLUTAMINE [Concomitant]
     Active Substance: GLUTAMINE
  7. MSM [Concomitant]
     Active Substance: DIMETHYL SULFONE
  8. AYUR-ASHWAGANDHA [Concomitant]
  9. QUERCETIN [Concomitant]
     Active Substance: QUERCETIN
  10. PROBIOTICS [Concomitant]
     Active Substance: PROBIOTICS NOS
  11. NETTLES [Concomitant]
  12. OREGANO OIL [Concomitant]
  13. BIOTIN [Concomitant]
     Active Substance: BIOTIN
  14. BORAGE OIL [Concomitant]
     Active Substance: BORAGE OIL
  15. VITAMIN C [Concomitant]
     Active Substance: ASCORBIC ACID
  16. EPO [Concomitant]
     Active Substance: ERYTHROPOIETIN
  17. FLUOCINONIDE USP, 0.05% TOPICAL, 0.05% TARO PHARMACEUTICALS INC. [Suspect]
     Active Substance: FLUOCINONIDE
     Indication: PSORIASIS
     Dosage: APLLIED TO A SUFFACE, USUALLY THE SKIN
     Dates: start: 20160427, end: 20160427
  18. MULTI  VIT [Concomitant]
  19. ALLERGA D [Concomitant]

REACTIONS (7)
  - Paraesthesia [None]
  - Lip swelling [None]
  - Swollen tongue [None]
  - Rash [None]
  - Pharyngeal oedema [None]
  - Reaction to drug excipients [None]
  - Pruritus generalised [None]

NARRATIVE: CASE EVENT DATE: 20160427
